FAERS Safety Report 5391199-1 (Version None)
Quarter: 2007Q3

REPORT INFORMATION
  Report Type: 
  Country: None (occurrence: None)
  Receive Date: 20070719
  Receipt Date: 20070710
  Transmission Date: 20080115
  Serious: Yes (Other)
  Sender: FDA-Public Use
  Company Number: US-BAYER-200616953BWH

PATIENT
  Age: 76 Year
  Sex: Male

DRUGS (16)
  1. NEXAVAR [Suspect]
     Indication: METASTATIC RENAL CELL CARCINOMA
     Dosage: TOTAL DAILY DOSE: 800 MG  UNIT DOSE: 200 MG
     Route: 048
     Dates: start: 20050921, end: 20070601
  2. CALTRATE [Concomitant]
     Indication: BLOOD CALCIUM DECREASED
     Dates: start: 20060201
  3. VITAMIN D [Concomitant]
     Dates: start: 20060201
  4. MAGNESIUM SULFATE [Concomitant]
     Dates: start: 20060201
  5. MAXZIDE [Concomitant]
  6. NEXIUM [Concomitant]
  7. CLARITIN [Concomitant]
  8. FOLIC ACID [Concomitant]
  9. ATENOLOL [Concomitant]
     Dosage: TOTAL DAILY DOSE: 100 MG
  10. CARDURA [Concomitant]
  11. PLENDIL [Concomitant]
  12. ZOCOR [Concomitant]
  13. ECOTRIN [Concomitant]
  14. ALLOPURINOL [Concomitant]
  15. CENTRUM SILVER [Concomitant]
  16. VITAMIN E [Concomitant]

REACTIONS (5)
  - BLOOD CALCIUM DECREASED [None]
  - DECREASED APPETITE [None]
  - DIARRHOEA [None]
  - METASTATIC RENAL CELL CARCINOMA [None]
  - WEIGHT DECREASED [None]
